FAERS Safety Report 8771782 (Version 2)
Quarter: 2013Q1

REPORT INFORMATION
  Report Type: Spontaneous
  Country: FR (occurrence: FR)
  Receive Date: 20120905
  Receipt Date: 20130220
  Transmission Date: 20140127
  Serious: Yes (Hospitalization)
  Sender: FDA-Public Use
  Company Number: FR-ROCHE-1108777

PATIENT
  Age: 56 Year
  Sex: Male

DRUGS (5)
  1. CELLCEPT [Suspect]
     Indication: PRODUCT USED FOR UNKNOWN INDICATION
     Route: 048
     Dates: start: 20110202, end: 20120919
  2. GLIVEC [Suspect]
     Indication: PRODUCT USED FOR UNKNOWN INDICATION
     Route: 048
     Dates: start: 20120321, end: 20120810
  3. CORTANCYL [Suspect]
     Indication: PRODUCT USED FOR UNKNOWN INDICATION
     Route: 048
     Dates: start: 20110407
  4. ENTOCORT [Concomitant]
  5. ROVALCYTE [Concomitant]

REACTIONS (2)
  - Duodenal ulcer perforation [Not Recovered/Not Resolved]
  - Peritonitis [Not Recovered/Not Resolved]
